FAERS Safety Report 7425341-5 (Version None)
Quarter: 2011Q2

REPORT INFORMATION
  Report Type: 
  Country: None (occurrence: None)
  Receive Date: 20110412
  Receipt Date: 20110330
  Transmission Date: 20111010
  Serious: Yes (Hospitalization)
  Sender: FDA-Public Use
  Company Number: US-JNJFOC-20100305999

PATIENT
  Age: 69 Year
  Sex: Male
  Weight: 95.5 kg

DRUGS (20)
  1. CELEXA [Concomitant]
  2. ZESTRIL [Concomitant]
  3. DECITABINE (DECITABINE) LYOPHILIZED POWDER [Suspect]
     Indication: MYELODYSPLASTIC SYNDROME
     Dosage: 20 MG, INTRAVENOUS
     Route: 042
     Dates: start: 20100202
  4. LASIX [Concomitant]
  5. LISINOPRIL [Concomitant]
  6. METOPROLOL (METOPROLOL) [Concomitant]
  7. SIMVASTATIN [Concomitant]
  8. PERCOCET [Concomitant]
  9. PERCOCET [Concomitant]
  10. FOLIC ACID [Concomitant]
  11. METFORMIN HCL [Concomitant]
  12. GLIPIZIDE (GLIPTZIDE) [Concomitant]
  13. ZOCOR [Concomitant]
  14. ZYLOPRIM [Concomitant]
  15. ASPIRIN [Concomitant]
  16. VITAMIN B12 [Concomitant]
  17. PLAVIX [Concomitant]
  18. AMBIEN [Concomitant]
  19. ALLOPURINOL [Concomitant]
  20. WELLBUTRIN [Concomitant]

REACTIONS (5)
  - DYSPNOEA [None]
  - CHOLECYSTITIS [None]
  - NEUTROPENIC COLITIS [None]
  - BONE MARROW FAILURE [None]
  - NEUTROPENIA [None]
